FAERS Safety Report 7376635-3 (Version None)
Quarter: 2011Q1

REPORT INFORMATION
  Report Type: 
  Country: None (occurrence: None)
  Receive Date: 20110317
  Receipt Date: 20110303
  Transmission Date: 20110831
  Serious: Yes (Other)
  Sender: FDA-Public Use
  Company Number: 2010SP059435

PATIENT
  Sex: Female
  Weight: 56 kg

DRUGS (1)
  1. NUVARING [Suspect]
     Indication: CONTRACEPTION
     Dosage: 1 DF; ; VAG
     Route: 067
     Dates: end: 20100826

REACTIONS (2)
  - DECUBITUS ULCER [None]
  - VAGINAL DISORDER [None]
